FAERS Safety Report 22036556 (Version 1)
Quarter: 2023Q1

REPORT INFORMATION
  Report Type: Spontaneous
  Country: US (occurrence: None)
  Receive Date: 20230223
  Receipt Date: 20230223
  Transmission Date: 20230418
  Serious: Yes (Hospitalization)
  Sender: FDA-Public Use
  Company Number: None

PATIENT
  Age: 72 Year
  Sex: Female
  Weight: 75.93 kg

DRUGS (1)
  1. CAPECITABINE [Suspect]
     Active Substance: CAPECITABINE
     Indication: Gastric cancer
     Dosage: OTHER QUANTITY : 2TMON-FRI;?FREQUENCY : TWICE A DAY;?
     Route: 048

REACTIONS (2)
  - Bronchitis [None]
  - Hypertension [None]

NARRATIVE: CASE EVENT DATE: 20230223
